FAERS Safety Report 8063842-X (Version None)
Quarter: 2012Q1

REPORT INFORMATION
  Report Type: 
  Country: None (occurrence: None)
  Receive Date: 20120117
  Receipt Date: 20120103
  Transmission Date: 20120608
  Serious: Yes (Death)
  Sender: FDA-Public Use
  Company Number: B0773620A

PATIENT
  Age: 62 Year
  Sex: Female

DRUGS (18)
  1. CLONIDINE [Suspect]
     Dosage: UNK/UNK/UNKNOWN
  2. FUROSEMIDE [Suspect]
     Dosage: UNK/UNK/UNKNOWN
  3. OMEPRAZOLE [Suspect]
     Dosage: UNK/UNK/UNKNOWN
  4. METOPROLOL (FORMULATION UNKNOWN) (GENERIC) (METOPROLOL) [Suspect]
     Dosage: UNK/UNK/UNKNOWN
  5. SALICYLATE (FORMULATION UNKNOWN) (GENERIC) (SALICYLATE) [Suspect]
     Dosage: UNK/UNK/UNKNOWN
  6. METOLAZONE [Suspect]
     Dosage: UNK/UNK/UNKNOWN
  7. AMLODIPINE [Suspect]
     Dosage: UNK/UNK/UNKNOWN
  8. GABAPENTIN [Suspect]
     Dosage: UNK/UNK/UNKNOWN
  9. DOCUSATE (FORMULATION UNKNOWN) (GENERIC) (DOCUSATE) [Suspect]
     Dosage: UNK/UNK/UNKNOWN
  10. IRON SALT (FORMULATION UNKNOWN) (GENERIC) (IRON SALT) [Suspect]
     Dosage: UNK/UNK/UNKNOWN
  11. CITALOPRAM (FORMULATION UNKNOWN) (GENERIC) (CITALOPRAM) [Suspect]
     Dosage: UNK/UNK/UNKNOWN
  12. METFORMIN HYDROCHLORIDE [Suspect]
     Dosage: UNK/UNK/UNKNOWN
  13. FAMOTIDINE [Suspect]
     Dosage: UNK/UNK/UNKNOWN
  14. LOVASTATIN [Suspect]
     Dosage: UNK/UNK/UNKNOWN
  15. INSULIN (FORMULATION UNKNOWN) (GENERIC) (INSULIN) [Suspect]
     Dosage: UNK/UNK/UNKNOWN
  16. ACE INHIBITOR (FORMULATION UNKNOWN) (GENERIC) (ACE INHIBITOR) [Suspect]
     Dosage: UNK/UNK/UNKNOWN
  17. IPRATROP.BR+SALBUTAM.SO4 (FORMULATION UNKNOWN) (GENERIC) (IPRATROP.BR+ [Suspect]
     Dosage: UNK/UNK/UNKNOWN
  18. FLUTICASONE+SALMETEROL (FORMULATION UNKNOWN) (GENERIC) (FLUTICASONE+SA [Suspect]
     Dosage: UNK/UNK/UNKNOWN

REACTIONS (1)
  - DEATH [None]
